FAERS Safety Report 6257258-6 (Version None)
Quarter: 2009Q3

REPORT INFORMATION
  Report Type: 
  Country: None (occurrence: None)
  Receive Date: 20090706
  Receipt Date: 20090624
  Transmission Date: 20100115
  Serious: Yes (Other)
  Sender: FDA-Public Use
  Company Number: JP-PFIZER INC-2009218548

PATIENT
  Age: 65 Year

DRUGS (3)
  1. MYCOBUTIN [Suspect]
     Dosage: UNK
     Route: 048
     Dates: start: 20081106, end: 20090526
  2. PREDNISOLONE [Concomitant]
     Dosage: UNK
     Route: 048
     Dates: start: 20090225
  3. RIFAMPICIN [Concomitant]
     Dosage: UNK
     Route: 048
     Dates: start: 20090527

REACTIONS (3)
  - MYALGIA [None]
  - POLYMYALGIA RHEUMATICA [None]
  - PYREXIA [None]
